FAERS Safety Report 24396091 (Version 1)
Quarter: 2024Q4

REPORT INFORMATION
  Report Type: Report from Study
  Country: DE (occurrence: DE)
  Receive Date: 20241004
  Receipt Date: 20241004
  Transmission Date: 20250115
  Serious: Yes (Hospitalization)
  Sender: ABBVIE
  Company Number: DE-ABBVIE-5947502

PATIENT
  Age: 63 Year
  Sex: Male
  Weight: 94 kg

DRUGS (1)
  1. RINVOQ [Suspect]
     Active Substance: UPADACITINIB
     Indication: Psoriatic arthropathy
     Dosage: 15 MILLIGRAM
     Route: 048
     Dates: start: 20240321

REACTIONS (1)
  - Peroneal nerve palsy [Recovered/Resolved]

NARRATIVE: CASE EVENT DATE: 20240910
